FAERS Safety Report 18014113 (Version 4)
Quarter: 2022Q1

REPORT INFORMATION
  Report Type: Spontaneous
  Country: US (occurrence: US)
  Receive Date: 20200713
  Receipt Date: 20220130
  Transmission Date: 20220423
  Serious: No
  Sender: FDA-Public Use
  Company Number: NVSC2020US194419

PATIENT
  Sex: Female

DRUGS (4)
  1. ZOFRAN [Suspect]
     Active Substance: ONDANSETRON HYDROCHLORIDE
     Indication: Product used for unknown indication
     Dosage: UNK
     Route: 065
  2. TUCATINIB [Suspect]
     Active Substance: TUCATINIB
     Indication: Hormone receptor positive breast cancer
     Dosage: 150 MG, BID
     Route: 048
     Dates: start: 202006
  3. XELODA [Concomitant]
     Active Substance: CAPECITABINE
     Indication: Product used for unknown indication
     Route: 065
  4. HERCEPTIN [Concomitant]
     Active Substance: TRASTUZUMAB
     Indication: Product used for unknown indication
     Dosage: UNK (EVERY 3 WEEKS)
     Route: 065

REACTIONS (9)
  - Diarrhoea [Recovered/Resolved]
  - Decreased appetite [Unknown]
  - Nausea [Recovering/Resolving]
  - Fatigue [Unknown]
  - Tumour marker abnormal [Unknown]
  - Diarrhoea [Unknown]
  - Palmar-plantar erythrodysaesthesia syndrome [Unknown]
  - Arthralgia [Unknown]
  - Product dose omission issue [Unknown]

NARRATIVE: CASE EVENT DATE: 20200630
